FAERS Safety Report 25274577 (Version 1)
Quarter: 2025Q2

REPORT INFORMATION
  Report Type: Spontaneous
  Country: US (occurrence: US)
  Receive Date: 20250506
  Receipt Date: 20250506
  Transmission Date: 20250717
  Serious: Yes (Death, Hospitalization)
  Sender: AMGEN
  Company Number: US-AMGEN-USASP2025085624

PATIENT
  Age: 23 Week
  Sex: Male
  Weight: 0.53 kg

DRUGS (4)
  1. INFLIXIMAB [Suspect]
     Active Substance: INFLIXIMAB
     Indication: Capillary leak syndrome
     Route: 065
  2. AMINOPHYLLINE [Concomitant]
     Active Substance: AMINOPHYLLINE
     Indication: Capillary leak syndrome
  3. Immunoglobulin [Concomitant]
     Indication: Capillary leak syndrome
     Route: 040
  4. ALBUMIN HUMAN [Concomitant]
     Active Substance: ALBUMIN HUMAN
     Indication: Capillary leak syndrome

REACTIONS (4)
  - Respiratory failure [Fatal]
  - Sepsis [Unknown]
  - Klebsiella infection [Unknown]
  - Off label use [Unknown]
